FAERS Safety Report 10512161 (Version 1)
Quarter: 2014Q4

REPORT INFORMATION
  Report Type: Spontaneous
  Country: US (occurrence: US)
  Receive Date: 20141010
  Receipt Date: 20141010
  Transmission Date: 20150528
  Serious: No
  Sender: FDA-Public Use
  Company Number: US-PFIZER INC-2014275747

PATIENT
  Age: 60 Year
  Sex: Female
  Weight: 72.56 kg

DRUGS (1)
  1. XELJANZ [Suspect]
     Active Substance: TOFACITINIB CITRATE
     Indication: RHEUMATOID ARTHRITIS
     Dosage: 5 MG, 2X/DAY
     Route: 048
     Dates: start: 201404, end: 201409

REACTIONS (5)
  - Urinary tract infection [Unknown]
  - Asthenia [Recovering/Resolving]
  - Drug ineffective [Unknown]
  - Blood cholesterol increased [Not Recovered/Not Resolved]
  - Fungal infection [Not Recovered/Not Resolved]

NARRATIVE: CASE EVENT DATE: 201404
